FAERS Safety Report 13824092 (Version 3)
Quarter: 2017Q3

REPORT INFORMATION
  Report Type: Spontaneous
  Country: AU (occurrence: AU)
  Receive Date: 20170802
  Receipt Date: 20170912
  Transmission Date: 20171127
  Serious: Yes (Hospitalization)
  Sender: FDA-Public Use
  Company Number: AU-B.I. PHARMACEUTICALS,INC./RIDGEFIELD-2017-BI-041918

PATIENT
  Age: 71 Year
  Sex: Female

DRUGS (1)
  1. JARDIANCE [Suspect]
     Active Substance: EMPAGLIFLOZIN
     Indication: PRODUCT USED FOR UNKNOWN INDICATION
     Route: 065
     Dates: end: 20170724

REACTIONS (20)
  - Tremor [Unknown]
  - Dizziness [Unknown]
  - Orthostatic hypotension [Unknown]
  - Erythema [Unknown]
  - Malaise [Unknown]
  - Pyrexia [Unknown]
  - Balance disorder [Unknown]
  - Candida infection [Unknown]
  - Back pain [Unknown]
  - Hyperhidrosis [Unknown]
  - Flushing [Unknown]
  - Blood pressure increased [Unknown]
  - Epistaxis [Unknown]
  - Urinary incontinence [Unknown]
  - Eye swelling [Unknown]
  - Disturbance in attention [Unknown]
  - Thirst [Unknown]
  - Dry mouth [Unknown]
  - Somnolence [Unknown]
  - Respiratory rate increased [Unknown]

NARRATIVE: CASE EVENT DATE: 20170705
